FAERS Safety Report 13536319 (Version 1)
Quarter: 2017Q2

REPORT INFORMATION
  Report Type: Spontaneous
  Country: CH (occurrence: CH)
  Receive Date: 20170511
  Receipt Date: 20170511
  Transmission Date: 20170830
  Serious: Yes (Hospitalization)
  Sender: FDA-Public Use
  Company Number: CH-JNJFOC-PRIUSA2000001080

PATIENT
  Age: 5 Week
  Sex: Male
  Weight: 3.6 kg

DRUGS (1)
  1. TRAMADOL HYDROCHLORIDE IR [Suspect]
     Active Substance: TRAMADOL HYDROCHLORIDE
     Indication: PRODUCT USED FOR UNKNOWN INDICATION
     Route: 054

REACTIONS (5)
  - Depressed level of consciousness [Unknown]
  - Accidental exposure to product by child [Unknown]
  - Toxicity to various agents [Unknown]
  - Respiratory depression [Unknown]
  - Hypotonia [Recovered/Resolved]
